FAERS Safety Report 5387070-1 (Version None)
Quarter: 2007Q3

REPORT INFORMATION
  Report Type: 
  Country: None (occurrence: None)
  Receive Date: 20070710
  Receipt Date: 20070626
  Transmission Date: 20080115
  Serious: Yes (Hospitalization)
  Sender: FDA-Public Use
  Company Number: 235289K07USA

PATIENT
  Age: 48 Year
  Sex: Male

DRUGS (2)
  1. REBIF [Suspect]
     Indication: OFF LABEL USE
     Dosage: 22 MCG, 3 IN 1 WEEKS, SUBCUTANEOUS
     Route: 058
     Dates: start: 20060922, end: 20070401
  2. REBIF [Suspect]
     Indication: OFF LABEL USE
     Dosage: 22 MCG, 3 IN 1 WEEKS, SUBCUTANEOUS
     Route: 058
     Dates: start: 20070401, end: 20070601

REACTIONS (5)
  - BODY TEMPERATURE INCREASED [None]
  - EATING DISORDER [None]
  - LETHARGY [None]
  - RASH MACULAR [None]
  - UNRESPONSIVE TO STIMULI [None]
